FAERS Safety Report 5065837-7 (Version None)
Quarter: 2006Q3

REPORT INFORMATION
  Report Type: 
  Country: None (occurrence: None)
  Receive Date: 20060726
  Receipt Date: 20060714
  Transmission Date: 20061208
  Serious: Yes (Hospitalization)
  Sender: FDA-Public Use
  Company Number: 2006PV017539

PATIENT
  Age: 61 Year
  Sex: Male
  Weight: 116 kg

DRUGS (3)
  1. BYETTA [Suspect]
     Indication: DIABETES MELLITUS
     Dosage: 5 MCG, BID; SC
     Route: 058
     Dates: end: 20060701
  2. LANTUS [Concomitant]
  3. HUMALOG MIX 50/50 [Concomitant]

REACTIONS (1)
  - CELLULITIS [None]
